FAERS Safety Report 4740561-6 (Version None)
Quarter: 2005Q3

REPORT INFORMATION
  Report Type: 
  Country: None (occurrence: None)
  Receive Date: 20050810
  Receipt Date: 20050804
  Transmission Date: 20060218
  Serious: Yes (Hospitalization)
  Sender: FDA-Public Use
  Company Number: 2005PK01460

PATIENT
  Age: 23 Year
  Sex: Female

DRUGS (1)
  1. SCANDICAIN [Suspect]
     Indication: ALLERGY TEST
     Route: 058
     Dates: start: 20050427, end: 20050427

REACTIONS (4)
  - BRADYPNOEA [None]
  - DEPRESSED LEVEL OF CONSCIOUSNESS [None]
  - MYALGIA [None]
  - RASH [None]
